FAERS Safety Report 7294231-3 (Version None)
Quarter: 2011Q1

REPORT INFORMATION
  Report Type: 
  Country: None (occurrence: None)
  Receive Date: 20110215
  Receipt Date: 20110122
  Transmission Date: 20110831
  Serious: No
  Sender: FDA-Public Use
  Company Number: US-B.I. PHARMACEUTICALS,INC./RIDGEFIELD-2011-BP-00197BP

PATIENT
  Sex: Female

DRUGS (3)
  1. LISINOPRIL [Concomitant]
     Indication: HYPERTENSION
     Dosage: 10 MG
     Route: 048
  2. CARTIA XT [Concomitant]
     Indication: HYPERTENSION
     Dosage: 240 MG
     Route: 048
     Dates: start: 20100101
  3. PRADAXA [Suspect]
     Indication: ATRIAL FIBRILLATION
     Dosage: 300 MG
     Route: 048
     Dates: start: 20101201

REACTIONS (4)
  - OEDEMA PERIPHERAL [None]
  - HYPERTENSION [None]
  - DYSPEPSIA [None]
  - JOINT SWELLING [None]
